FAERS Safety Report 5532559-5 (Version None)
Quarter: 2007Q4

REPORT INFORMATION
  Report Type: 
  Country: None (occurrence: None)
  Receive Date: 20071203
  Receipt Date: 20071127
  Transmission Date: 20080405
  Serious: No
  Sender: FDA-Public Use
  Company Number: US-BOEHRINGER INGELHEIM PHARMACEUTICALS, INC.-2007-BP-24499BP

PATIENT
  Sex: Male

DRUGS (12)
  1. SPIRIVA [Suspect]
     Indication: CHRONIC OBSTRUCTIVE PULMONARY DISEASE
     Route: 055
     Dates: start: 20070101
  2. SPIRIVA [Suspect]
     Indication: DYSPNOEA
  3. WARFARIN SODIUM [Concomitant]
  4. PRANDIN [Concomitant]
  5. QUINAPRIL HCL [Concomitant]
  6. NORVASC [Concomitant]
  7. ISOSORBIDE DINITRATE [Concomitant]
  8. CORDAN [Concomitant]
  9. AMIDIONE [Concomitant]
  10. DIGITEX [Concomitant]
  11. PRAVACHOL [Concomitant]
  12. FINASTERID [Concomitant]

REACTIONS (1)
  - DRUG INEFFECTIVE [None]
